FAERS Safety Report 5441292-X (Version None)
Quarter: 2007Q3

REPORT INFORMATION
  Report Type: 
  Country: None (occurrence: None)
  Receive Date: 20070903
  Receipt Date: 20070827
  Transmission Date: 20080115
  Serious: Yes (Death, Life-Threatening, Hospitalization, Disabling, Other)
  Sender: FDA-Public Use
  Company Number: US-MERCK-0708USA05092

PATIENT
  Age: 75 Year
  Sex: Male

DRUGS (6)
  1. JANUVIA [Suspect]
     Indication: TYPE 2 DIABETES MELLITUS
     Route: 048
     Dates: start: 20070530, end: 20070613
  2. NORVASC [Concomitant]
     Route: 065
  3. VASOTEC [Concomitant]
     Route: 048
  4. ZOLOFT [Concomitant]
     Route: 065
  5. FLOMAX [Concomitant]
     Route: 065
  6. LASIX [Concomitant]
     Route: 065

REACTIONS (2)
  - HYPOTENSION [None]
  - RENAL FAILURE ACUTE [None]
